FAERS Safety Report 24167850 (Version 1)
Quarter: 2024Q3

REPORT INFORMATION
  Report Type: Spontaneous
  Country: SE (occurrence: SE)
  Receive Date: 20240802
  Receipt Date: 20240802
  Transmission Date: 20241016
  Serious: Yes (Other)
  Sender: SK LIFE SCIENCE
  Company Number: None

PATIENT

DRUGS (2)
  1. XCOPRI [Suspect]
     Active Substance: CENOBAMATE
     Indication: Epilepsy
     Dosage: 200 MG (200 MG,1 D)
     Route: 048
     Dates: start: 20240221
  2. XCOPRI [Suspect]
     Active Substance: CENOBAMATE
     Dosage: 25 MG AND 12.5 MG QD
     Route: 048
     Dates: start: 20240221

REACTIONS (3)
  - Change in seizure presentation [Not Recovered/Not Resolved]
  - Seizure [Not Recovered/Not Resolved]
  - Sedation [Not Recovered/Not Resolved]

NARRATIVE: CASE EVENT DATE: 20240101
